FAERS Safety Report 10183900 (Version 1)
Quarter: 2014Q2

REPORT INFORMATION
  Report Type: Spontaneous
  Country: CH (occurrence: CH)
  Receive Date: 20140520
  Receipt Date: 20140520
  Transmission Date: 20141212
  Serious: Yes (Hospitalization)
  Sender: FDA-Public Use
  Company Number: CH-TEVA-480402ISR

PATIENT
  Age: 73 Year
  Sex: Female

DRUGS (5)
  1. CO-ENATEC [Suspect]
     Route: 048
     Dates: end: 20140314
  2. TOREM 10 TABLETTEN [Suspect]
     Dosage: 10 MILLIGRAM DAILY; STARTED SHORTLY BEFORE THE TIME OF REPORTING BY THE INITIAL REPORTER
     Route: 048
     Dates: end: 20140314
  3. ASPIRIN CARDIO [Concomitant]
  4. AMLODIPIN [Concomitant]
  5. PRAVASTATIN [Concomitant]

REACTIONS (3)
  - Hypokalaemia [Recovered/Resolved]
  - Metabolic alkalosis [Recovered/Resolved]
  - Left ventricular failure [Recovered/Resolved]
